FAERS Safety Report 6439719-X (Version None)
Quarter: 2009Q4

REPORT INFORMATION
  Report Type: 
  Country: None (occurrence: None)
  Receive Date: 20091113
  Receipt Date: 20091030
  Transmission Date: 20100525
  Serious: Yes (Hospitalization, Other)
  Sender: FDA-Public Use
  Company Number: DE-ELI_LILLY_AND_COMPANY-DE200907002894

PATIENT
  Sex: Male
  Weight: 85 kg

DRUGS (6)
  1. ALIMTA [Suspect]
     Indication: PLEURAL MESOTHELIOMA
     Dosage: 500 MG/M2, 1 IN 1 DAY
     Route: 042
     Dates: start: 20090505
  2. CISPLATIN [Concomitant]
     Indication: PLEURAL MESOTHELIOMA
     Dosage: 75 MG/M2, DAILY (1/D)
     Route: 042
     Dates: start: 20090505
  3. KEVATRIL [Concomitant]
     Dosage: 1 MG, 2/D
     Route: 065
  4. FORTECORTIN [Concomitant]
     Dosage: 4 MG, (2) DAILY (1/D)
  5. FOLIC ACID [Concomitant]
     Dosage: 1 MG, DAILY (1/D)
     Route: 065
  6. AMIODARONE HYDROCHLORIDE [Concomitant]
     Indication: TACHYARRHYTHMIA

REACTIONS (6)
  - ENTEROCOLITIS [None]
  - EPIDERMOLYSIS [None]
  - HYPOTENSION [None]
  - NEUTROPENIA [None]
  - RENAL FAILURE ACUTE [None]
  - TACHYARRHYTHMIA [None]
